FAERS Safety Report 14143779 (Version 1)
Quarter: 2017Q4

REPORT INFORMATION
  Report Type: Report from Study
  Country: None (occurrence: US)
  Receive Date: 20171031
  Receipt Date: 20171031
  Transmission Date: 20180321
  Serious: Yes (Other)
  Sender: FDA-Public Use
  Company Number: US-ABBVIE-17K-163-2142155-00

PATIENT
  Age: 60 Year
  Sex: Female

DRUGS (1)
  1. HUMIRA [Suspect]
     Active Substance: ADALIMUMAB
     Indication: CROHN^S DISEASE
     Route: 058
     Dates: start: 20170609

REACTIONS (8)
  - Tremor [Recovering/Resolving]
  - Gait disturbance [Unknown]
  - Blindness transient [Recovering/Resolving]
  - Amnesia [Recovering/Resolving]
  - Concussion [Recovering/Resolving]
  - Balance disorder [Recovering/Resolving]
  - Back injury [Unknown]
  - Fall [Unknown]

NARRATIVE: CASE EVENT DATE: 2017
